FAERS Safety Report 14732976 (Version 2)
Quarter: 2018Q2

REPORT INFORMATION
  Report Type: Spontaneous
  Country: NZ (occurrence: NZ)
  Receive Date: 20180409
  Receipt Date: 20180503
  Transmission Date: 20180711
  Serious: Yes (Death, Hospitalization)
  Sender: FDA-Public Use
  Company Number: NZ-KADMON PHARMACEUTICALS, LLC-KAD-201804-01287

PATIENT
  Sex: Female

DRUGS (4)
  1. RIBAVIRIN. [Suspect]
     Active Substance: RIBAVIRIN
     Dosage: 1000 MG
     Route: 048
     Dates: start: 20170718
  2. VIEKIRA PAK [Suspect]
     Active Substance: DASABUVIR\OMBITASVIR\PARITAPREVIR\RITONAVIR
     Dosage: 75/50/12
     Route: 048
     Dates: start: 20170718, end: 20170814
  3. RIBAVIRIN. [Suspect]
     Active Substance: RIBAVIRIN
     Indication: HEPATITIS C
     Dosage: 1000 MG
     Route: 048
     Dates: start: 20170418
  4. VIEKIRA PAK [Suspect]
     Active Substance: DASABUVIR\OMBITASVIR\PARITAPREVIR\RITONAVIR
     Indication: HEPATITIS C
     Dosage: 75/50/12
     Route: 048
     Dates: start: 20170418

REACTIONS (9)
  - Malaise [Unknown]
  - Bronchiectasis [Unknown]
  - Lung hyperinflation [Unknown]
  - Bronchitis [Unknown]
  - Nasopharyngitis [Unknown]
  - Death [Fatal]
  - Chronic obstructive pulmonary disease [Unknown]
  - General symptom [Unknown]
  - Lower respiratory tract infection [Recovering/Resolving]

NARRATIVE: CASE EVENT DATE: 20170729
